FAERS Safety Report 19309116 (Version 1)
Quarter: 2021Q2

REPORT INFORMATION
  Report Type: Spontaneous
  Country: US (occurrence: US)
  Receive Date: 20210525
  Receipt Date: 20210525
  Transmission Date: 20210717
  Serious: No
  Sender: FDA-Public Use
  Company Number: US-SA-2021SA171147

PATIENT
  Age: 49 Year
  Sex: Male

DRUGS (10)
  1. GINGER [ZINGIBER OFFICINALE ROOT] [Concomitant]
  2. AZELASTINE. [Concomitant]
     Active Substance: AZELASTINE HYDROCHLORIDE
  3. DUPIXENT [Suspect]
     Active Substance: DUPILUMAB
     Indication: NASAL POLYPS
     Dosage: 300 MG, QOW
     Route: 058
  4. VITAMIN B12 [VITAMIN B12 NOS] [Concomitant]
     Active Substance: CYANOCOBALAMIN
  5. VITAMIN D3 [Concomitant]
     Active Substance: CHOLECALCIFEROL
  6. MELOXICAM. [Concomitant]
     Active Substance: MELOXICAM
  7. AMLODIPINE [Concomitant]
     Active Substance: AMLODIPINE BESYLATE
     Dosage: UNK
  8. LOSARTAN. [Concomitant]
     Active Substance: LOSARTAN
  9. FLONAZE [Concomitant]
     Active Substance: FLUTICASONE PROPIONATE
  10. TURMERIC [CURCUMA LONGA ROOT] [Concomitant]

REACTIONS (3)
  - Dyspnoea [Unknown]
  - Sinus operation [Unknown]
  - Insomnia [Unknown]
